FAERS Safety Report 20901631 (Version 1)
Quarter: 2022Q2

REPORT INFORMATION
  Report Type: Spontaneous
  Country: US (occurrence: None)
  Receive Date: 20220601
  Receipt Date: 20220601
  Transmission Date: 20220720
  Serious: No
  Sender: FDA-Public Use
  Company Number: None

PATIENT
  Sex: Female

DRUGS (1)
  1. CAPECITABINE [Suspect]
     Active Substance: CAPECITABINE
     Indication: Colon cancer
     Dosage: 1500MG TWICE DAILY ORAL
     Route: 048
     Dates: start: 20220430

REACTIONS (4)
  - Mouth ulceration [None]
  - Vaginal ulceration [None]
  - Impaired quality of life [None]
  - Dysuria [None]
